FAERS Safety Report 17912127 (Version 2)
Quarter: 2020Q2

REPORT INFORMATION
  Report Type: Report from Study
  Country: IT (occurrence: IT)
  Receive Date: 20200618
  Receipt Date: 20200624
  Transmission Date: 20200714
  Serious: Yes (Hospitalization)
  Sender: FDA-Public Use
  Company Number: IT-MYLANLABS-2020M1057264

PATIENT
  Age: 69 Year
  Sex: Male

DRUGS (8)
  1. HUMALOG [Concomitant]
     Active Substance: INSULIN LISPRO
  2. PANTOPRAZOLE [Concomitant]
     Active Substance: PANTOPRAZOLE
     Dosage: UNK
  3. CITALOPRAM [Suspect]
     Active Substance: CITALOPRAM HYDROBROMIDE
     Indication: POLYNEUROPATHY
     Dosage: 1 DOSAGE FORM, QD
     Route: 048
  4. LANTUS [Concomitant]
     Active Substance: INSULIN GLARGINE
     Dosage: UNK
  5. CARDIOASPIRIN [Concomitant]
     Active Substance: ASPIRIN
  6. NITROGLICERINA DOC GENERICI [Concomitant]
     Dosage: UNK/ 5 MG/24 HRS
  7. SIMVASTATINA ABC [Concomitant]
     Active Substance: SIMVASTATIN
     Dosage: UNK
  8. CANRENONE [Interacting]
     Active Substance: CANRENONE
     Indication: HYPERTENSION
     Dosage: 1 DOSAGE FORM, QD
     Route: 048

REACTIONS (4)
  - Psychomotor hyperactivity [Recovering/Resolving]
  - Chest pain [Recovering/Resolving]
  - Drug interaction [Unknown]
  - Blood sodium decreased [Recovering/Resolving]

NARRATIVE: CASE EVENT DATE: 20200404
